FAERS Safety Report 5549684-5 (Version None)
Quarter: 2007Q4

REPORT INFORMATION
  Report Type: 
  Country: None (occurrence: None)
  Receive Date: 20071128
  Receipt Date: 20071007
  Transmission Date: 20080405
  Serious: Yes (Hospitalization)
  Sender: FDA-Public Use
  Company Number: 2007084517

PATIENT
  Sex: Female

DRUGS (1)
  1. EXUBERA [Suspect]

REACTIONS (3)
  - CHEST PAIN [None]
  - DYSPNOEA [None]
  - RESPIRATORY DISTRESS [None]
